FAERS Safety Report 14948136 (Version 5)
Quarter: 2018Q3

REPORT INFORMATION
  Report Type: Spontaneous
  Country: JP (occurrence: JP)
  Receive Date: 20180529
  Receipt Date: 20180824
  Transmission Date: 20181010
  Serious: Yes (Other)
  Sender: FDA-Public Use
  Company Number: JP-PFIZER INC-2018211106

PATIENT
  Age: 56 Year
  Sex: Female

DRUGS (4)
  1. BESPONSA [Suspect]
     Active Substance: INOTUZUMAB OZOGAMICIN
     Dosage: UNK
     Route: 041
     Dates: start: 20180703, end: 20180730
  2. BESPONSA [Suspect]
     Active Substance: INOTUZUMAB OZOGAMICIN
     Dosage: UNK
     Route: 041
     Dates: start: 20180507
  3. BESPONSA [Suspect]
     Active Substance: INOTUZUMAB OZOGAMICIN
     Dosage: UNK
     Route: 041
     Dates: start: 20180822
  4. DEXAMETHASONE. [Suspect]
     Active Substance: DEXAMETHASONE
     Dosage: UNK

REACTIONS (5)
  - Weight decreased [Unknown]
  - White blood cell count increased [Unknown]
  - Hepatic function abnormal [Unknown]
  - Oedema [Unknown]
  - Cardiac failure [Unknown]
